FAERS Safety Report 25678701 (Version 1)
Quarter: 2025Q3

REPORT INFORMATION
  Report Type: Spontaneous
  Country: US (occurrence: US)
  Receive Date: 20250814
  Receipt Date: 20250814
  Transmission Date: 20251021
  Serious: No
  Sender: BAUSCH AND LOMB
  Company Number: US-BAUSCHBL-2025BNL014135

PATIENT
  Sex: Female

DRUGS (1)
  1. MIEBO [Suspect]
     Active Substance: PERFLUOROHEXYLOCTANE
     Indication: Dry eye
     Route: 047
     Dates: start: 20250812, end: 20250812

REACTIONS (2)
  - Foreign body sensation in eyes [Unknown]
  - Burning sensation [Unknown]

NARRATIVE: CASE EVENT DATE: 20250812
